FAERS Safety Report 5638419-3 (Version None)
Quarter: 2008Q1

REPORT INFORMATION
  Report Type: 
  Country: None (occurrence: None)
  Receive Date: 20080222
  Receipt Date: 20080222
  Transmission Date: 20080703
  Serious: Yes (Hospitalization)
  Sender: FDA-Public Use
  Company Number: None

PATIENT
  Sex: Male
  Weight: 67 kg

DRUGS (8)
  1. ELOXATIN [Suspect]
     Dosage: 152 MG
  2. FLUOROURACIL [Suspect]
     Dosage: 5015 MG
  3. LEUCOVORIN CALCIUM [Suspect]
     Dosage: 715 MG
  4. ASPIRIN [Concomitant]
  5. ACEBUTOLOL [Concomitant]
  6. IBUPROFEN [Concomitant]
  7. OXYCODINE [Concomitant]
  8. PRAVASTATIN [Concomitant]

REACTIONS (2)
  - PULMONARY EMBOLISM [None]
  - PYREXIA [None]
